FAERS Safety Report 6127972-1 (Version None)
Quarter: 2009Q1

REPORT INFORMATION
  Report Type: 
  Country: None (occurrence: None)
  Receive Date: 20090323
  Receipt Date: 20090310
  Transmission Date: 20090719
  Serious: Yes (Other)
  Sender: FDA-Public Use
  Company Number: US-PFIZER INC-2006052026

PATIENT
  Sex: Female

DRUGS (8)
  1. PROVERA [Suspect]
     Indication: HORMONE REPLACEMENT THERAPY
     Dosage: 10 MG, UNK
     Route: 048
     Dates: start: 19920101, end: 19960101
  2. PROVERA [Suspect]
     Indication: MENOPAUSE
  3. MEDROXYPROGESTERONE AND MEDROXYPROGESTERONE ACETATE [Suspect]
     Indication: HORMONE REPLACEMENT THERAPY
     Dosage: UNKNOWNUNKNOWN
     Route: 065
  4. PREMARIN [Suspect]
     Indication: HORMONE REPLACEMENT THERAPY
     Dosage: UNK
     Route: 065
     Dates: start: 19940101, end: 19960101
  5. PREMARIN [Suspect]
     Indication: MENOPAUSE
  6. PREMPHASE 14/14 [Suspect]
     Indication: HORMONE REPLACEMENT THERAPY
     Dosage: UNK
     Route: 065
     Dates: start: 19960101, end: 20040101
  7. PREMPHASE 14/14 [Suspect]
     Indication: MENOPAUSE
  8. ESTRATEST [Suspect]
     Indication: HORMONE REPLACEMENT THERAPY
     Route: 065

REACTIONS (1)
  - BREAST CANCER FEMALE [None]
